FAERS Safety Report 13593576 (Version 2)
Quarter: 2017Q2

REPORT INFORMATION
  Report Type: Spontaneous
  Country: JP (occurrence: JP)
  Receive Date: 20170530
  Receipt Date: 20170626
  Transmission Date: 20170830
  Serious: No
  Sender: FDA-Public Use
  Company Number: JP-ELI_LILLY_AND_COMPANY-JP201705010091

PATIENT
  Age: 66 Year
  Sex: Male

DRUGS (3)
  1. CIALIS [Suspect]
     Active Substance: TADALAFIL
     Indication: ERECTILE DYSFUNCTION
     Dosage: UNK
     Route: 048
     Dates: start: 20170511
  2. CIALIS [Suspect]
     Active Substance: TADALAFIL
     Dosage: 80 MG, UNK
     Route: 048
     Dates: start: 201705
  3. CIALIS [Suspect]
     Active Substance: TADALAFIL
     Dosage: 100 MG, UNK
     Route: 048
     Dates: start: 201705, end: 201705

REACTIONS (3)
  - Energy increased [Recovered/Resolved]
  - Overdose [Unknown]
  - Drug effect decreased [Unknown]

NARRATIVE: CASE EVENT DATE: 201705
